FAERS Safety Report 23233218 (Version 3)
Quarter: 2023Q4

REPORT INFORMATION
  Report Type: Report from Study
  Country: CA (occurrence: CA)
  Receive Date: 20231128
  Receipt Date: 20231212
  Transmission Date: 20240110
  Serious: Yes (Hospitalization)
  Sender: FDA-Public Use
  Company Number: CA-ULTRAGENYX PHARMACEUTICAL INC.-CA-UGX-23-01334

PATIENT
  Sex: Female

DRUGS (3)
  1. DOJOLVI [Suspect]
     Active Substance: TRIHEPTANOIN
     Indication: Fatty acid oxidation disorder
     Dosage: UNK
     Route: 048
     Dates: start: 20230216
  2. DOJOLVI [Suspect]
     Active Substance: TRIHEPTANOIN
     Dosage: 5-10 ML ONCE OR TWICE A DAY
     Route: 048
  3. DOJOLVI [Suspect]
     Active Substance: TRIHEPTANOIN
     Dosage: 4 MILLILITER, BID
     Route: 048

REACTIONS (3)
  - Malaise [Unknown]
  - Hospitalisation [Unknown]
  - Drug intolerance [Unknown]
